FAERS Safety Report 5742427-1 (Version None)
Quarter: 2008Q2

REPORT INFORMATION
  Report Type: 
  Country: None (occurrence: None)
  Receive Date: 20080514
  Receipt Date: 20080514
  Transmission Date: 20081010
  Serious: No
  Sender: FDA-Public Use
  Company Number: None

PATIENT
  Age: 51 Year
  Sex: Male

DRUGS (1)
  1. TRAZODONE HCL [Suspect]
     Dates: start: 20080324, end: 20080406

REACTIONS (1)
  - PRIAPISM [None]
